FAERS Safety Report 6882691-9 (Version None)
Quarter: 2010Q3

REPORT INFORMATION
  Report Type: 
  Country: None (occurrence: None)
  Receive Date: 20100729
  Receipt Date: 20100716
  Transmission Date: 20110219
  Serious: Yes (Hospitalization)
  Sender: FDA-Public Use
  Company Number: US-ELI_LILLY_AND_COMPANY-US201007005733

PATIENT
  Sex: Female

DRUGS (1)
  1. FORTEO [Suspect]
     Indication: OSTEOPOROSIS
     Dosage: 20 UG, DAILY (1/D)
     Dates: start: 20100519

REACTIONS (6)
  - BACK PAIN [None]
  - CELLULITIS [None]
  - ILL-DEFINED DISORDER [None]
  - KIDNEY INFECTION [None]
  - PAIN IN EXTREMITY [None]
  - RENAL PAIN [None]
